FAERS Safety Report 5777772-7 (Version None)
Quarter: 2008Q2

REPORT INFORMATION
  Report Type: 
  Country: None (occurrence: None)
  Receive Date: 20080618
  Receipt Date: 20080609
  Transmission Date: 20081010
  Serious: Yes (Hospitalization)
  Sender: FDA-Public Use
  Company Number: FR-BAYER-200820201GPV

PATIENT
  Age: 45 Year
  Sex: Male

DRUGS (1)
  1. CLARAGINE (ACETYLSALICYLIC ACID) [Suspect]
     Indication: HEADACHE
     Route: 048
     Dates: start: 20071215

REACTIONS (8)
  - ABDOMINAL PAIN [None]
  - DIARRHOEA [None]
  - HYPERHIDROSIS [None]
  - HYPERSENSITIVITY [None]
  - MALAISE [None]
  - OEDEMA [None]
  - RASH [None]
  - RHINITIS [None]
